FAERS Safety Report 25870643 (Version 1)
Quarter: 2025Q4

REPORT INFORMATION
  Report Type: Spontaneous
  Country: US (occurrence: None)
  Receive Date: 20251001
  Receipt Date: 20251001
  Transmission Date: 20260118
  Serious: No
  Sender: FDA-CTU
  Company Number: None

PATIENT
  Age: 51 Year
  Sex: Female

DRUGS (13)
  1. LEQVIO [Suspect]
     Active Substance: INCLISIRAN SODIUM
     Indication: Blood cholesterol increased
     Dates: start: 20250624
  2. SYNTHROID [Concomitant]
     Active Substance: LEVOTHYROXINE SODIUM
  3. OXTELLAR XR [Concomitant]
     Active Substance: OXCARBAZEPINE
  4. FAMOTIDINE [Concomitant]
     Active Substance: FAMOTIDINE
  5. PROTONIX [Concomitant]
     Active Substance: PANTOPRAZOLE SODIUM
  6. UBRELVY [Concomitant]
     Active Substance: UBROGEPANT
  7. ALLEGRA [Concomitant]
     Active Substance: FEXOFENADINE HYDROCHLORIDE
  8. WIXELA INHUB [Concomitant]
     Active Substance: FLUTICASONE PROPIONATE\SALMETEROL XINAFOATE
  9. B12 [Concomitant]
  10. omega 3-6-7-9 [Concomitant]
  11. PROBIOTICS NOS [Concomitant]
     Active Substance: PROBIOTICS NOS
  12. d3+k2 w/calcium [Concomitant]
  13. FIBER THERAPY (CALCIUM POLYCARBOPHIL) [Concomitant]
     Active Substance: CALCIUM POLYCARBOPHIL

REACTIONS (7)
  - Arthralgia [None]
  - Arthralgia [None]
  - Arthralgia [None]
  - Injection site reaction [None]
  - Injection site rash [None]
  - Rash papular [None]
  - Urticaria [None]
